FAERS Safety Report 7783304-4 (Version None)
Quarter: 2011Q3

REPORT INFORMATION
  Report Type: 
  Country: None (occurrence: None)
  Receive Date: 20110928
  Receipt Date: 20110919
  Transmission Date: 20111222
  Serious: Yes (Hospitalization, Other)
  Sender: FDA-Public Use
  Company Number: US-BAYER-2011-005975

PATIENT
  Age: 20 Year
  Sex: Female
  Weight: 66.213 kg

DRUGS (3)
  1. ASPIRIN [Concomitant]
  2. YAZ [Suspect]
     Indication: CONTRACEPTION
     Dosage: UNK
     Dates: start: 20070227, end: 20070305
  3. LOVENOX [Concomitant]

REACTIONS (10)
  - DEEP VEIN THROMBOSIS [None]
  - INJURY [None]
  - OEDEMA PERIPHERAL [None]
  - CHOLELITHIASIS [None]
  - CHOLECYSTECTOMY [None]
  - ABASIA [None]
  - EMOTIONAL DISTRESS [None]
  - PAIN [None]
  - ANXIETY [None]
  - ABORTION SPONTANEOUS [None]
